FAERS Safety Report 9117302 (Version 1)
Quarter: 2013Q1

REPORT INFORMATION
  Report Type: Spontaneous
  Country: US (occurrence: US)
  Receive Date: 20130225
  Receipt Date: 20130225
  Transmission Date: 20140127
  Serious: No
  Sender: FDA-Public Use
  Company Number: US-BIOGENIDEC-2012BI059284

PATIENT
  Age: 68 Year
  Sex: Female

DRUGS (1)
  1. AVONEX [Suspect]
     Indication: MULTIPLE SCLEROSIS
     Route: 030
     Dates: start: 19980515

REACTIONS (9)
  - Cataract operation [Recovered/Resolved]
  - Optic nerve disorder [Unknown]
  - Scar [Not Recovered/Not Resolved]
  - Tremor [Not Recovered/Not Resolved]
  - Asthenia [Recovered/Resolved]
  - Adverse reaction [Recovered/Resolved]
  - Anxiety [Recovered/Resolved]
  - Injection site bruising [Recovered/Resolved]
  - Vision blurred [Not Recovered/Not Resolved]
